FAERS Safety Report 8927139 (Version 1)
Quarter: 2012Q4

REPORT INFORMATION
  Report Type: 
  Country: DE (occurrence: DE)
  Receive Date: 20121127
  Receipt Date: 20121127
  Transmission Date: 20130627
  Serious: Yes (Hospitalization, Other)
  Sender: FDA-Public Use
  Company Number: DE-ROCHE-1145524

PATIENT
  Age: 70 None
  Sex: Male
  Weight: 78 kg

DRUGS (13)
  1. AVASTIN [Suspect]
     Indication: COLON CANCER METASTATIC
     Dosage: On 01/Oct/2012, last dose of Bevacizumab prior to event was given
     Route: 042
     Dates: start: 20120227
  2. AVASTIN [Suspect]
     Route: 042
     Dates: start: 201208, end: 20121001
  3. 5-FU [Concomitant]
     Indication: COLON CANCER METASTATIC
     Route: 042
     Dates: start: 20120227, end: 20120523
  4. 5-FU [Concomitant]
     Route: 042
     Dates: start: 201205, end: 201207
  5. OXALIPLATIN [Concomitant]
     Indication: COLON CANCER METASTATIC
     Route: 065
     Dates: start: 20120227, end: 20120523
  6. LEUCOVORIN [Concomitant]
     Indication: COLON CANCER METASTATIC
     Route: 065
     Dates: start: 20120227, end: 20120523
  7. ASS-100 [Concomitant]
     Indication: PERIPHERAL ARTERIAL OCCLUSIVE DISEASE
     Route: 048
  8. ASS-100 [Concomitant]
     Indication: CORONARY ARTERY DISEASE
  9. SIOFOR [Concomitant]
     Indication: DIABETES MELLITUS
     Route: 048
     Dates: end: 201210
  10. SIOFOR [Concomitant]
     Route: 048
     Dates: start: 201210
  11. DELIX [Concomitant]
     Indication: CORONARY ARTERY DISEASE
     Route: 048
  12. SIMVASTATIN [Concomitant]
     Indication: DYSLIPIDAEMIA
     Route: 048
  13. BERLINSULIN H [Concomitant]
     Indication: DIABETES MELLITUS
     Dosage: 32-34 IU
     Route: 058

REACTIONS (5)
  - Cerebrovascular accident [Unknown]
  - Cerebrovascular accident [Recovered/Resolved]
  - Atrial fibrillation [Unknown]
  - Dyspnoea [Unknown]
  - Speech disorder [Recovered/Resolved]
